FAERS Safety Report 25617922 (Version 1)
Quarter: 2025Q3

REPORT INFORMATION
  Report Type: Spontaneous
  Country: US (occurrence: US)
  Receive Date: 20250729
  Receipt Date: 20250729
  Transmission Date: 20251020
  Serious: Yes (Life-Threatening, Hospitalization, Disabling)
  Sender: DR REDDYS
  Company Number: None

PATIENT
  Age: 69 Year
  Sex: Male

DRUGS (2)
  1. HEPARIN [Suspect]
     Active Substance: HEPARIN SODIUM
     Indication: Cerebrovascular accident prophylaxis
     Dosage: IV HEPARIN DOSED AS A U/KG IV BOLUS THEN 18 U/KG/H
     Route: 042
  2. AMIODARONE [Concomitant]
     Active Substance: AMIODARONE
     Indication: Atrial fibrillation
     Route: 042

REACTIONS (8)
  - Heparin-induced thrombocytopenia [Recovering/Resolving]
  - Peripheral arterial occlusive disease [Recovering/Resolving]
  - Peripheral ischaemia [Recovering/Resolving]
  - Deep vein thrombosis [Recovering/Resolving]
  - Arterial thrombosis [Recovering/Resolving]
  - Pulmonary artery thrombosis [Recovering/Resolving]
  - Aortic thrombosis [Recovering/Resolving]
  - Pulmonary embolism [Recovering/Resolving]
